FAERS Safety Report 22336456 (Version 1)
Quarter: 2023Q2

REPORT INFORMATION
  Report Type: Report from Study
  Country: US (occurrence: None)
  Receive Date: 20230518
  Receipt Date: 20230518
  Transmission Date: 20230721
  Serious: Yes (Hospitalization, Other)
  Sender: FDA-Public Use
  Company Number: US-ROCHE-3349433

PATIENT

DRUGS (14)
  1. RITUXIMAB [Suspect]
     Active Substance: RITUXIMAB
     Indication: Burkitt^s lymphoma
     Dosage: SUBSEQUENT DOSE WAS TAKEN ON 16/MAY/2016 TO 16/MAY/2016. 06/JUN/2016 TO 06/JUN/2016, 27/JUN/2016 TO
     Route: 041
     Dates: start: 20160425, end: 20160425
  2. CYCLOPHOSPHAMIDE [Suspect]
     Active Substance: CYCLOPHOSPHAMIDE
     Indication: Burkitt^s lymphoma
     Route: 042
     Dates: start: 20160429, end: 20160429
  3. CYCLOPHOSPHAMIDE [Suspect]
     Active Substance: CYCLOPHOSPHAMIDE
     Route: 042
     Dates: start: 20160520, end: 20160520
  4. CYCLOPHOSPHAMIDE [Suspect]
     Active Substance: CYCLOPHOSPHAMIDE
     Route: 042
     Dates: start: 20160610, end: 20160610
  5. CYCLOPHOSPHAMIDE [Suspect]
     Active Substance: CYCLOPHOSPHAMIDE
     Route: 042
     Dates: start: 20160701, end: 20160701
  6. CYCLOPHOSPHAMIDE [Suspect]
     Active Substance: CYCLOPHOSPHAMIDE
     Dosage: SUBSEQUENT DOSE WAS TAKEN ON 12/AUG/2016 TO 12/AUG/2016
     Route: 042
     Dates: start: 20160722, end: 20160722
  7. DOXORUBICIN [Suspect]
     Active Substance: DOXORUBICIN
     Indication: Burkitt^s lymphoma
     Dosage: SUBSEQUENT DOSE WAS TAKEN ON 27/JUN/2016 TO 01/JUL/2016, 18/JUL/2016 TO 22/JUL/2016, 08/AUG/2016 TO
     Route: 042
     Dates: start: 20160425, end: 20160428
  8. DOXORUBICIN [Suspect]
     Active Substance: DOXORUBICIN
     Dosage: SUBSEQUENT DOSE WAS TAKEN ON 6/JUN/2016 TO 10/JUN/2016
     Route: 042
  9. ETOPOSIDE [Suspect]
     Active Substance: ETOPOSIDE
     Indication: Burkitt^s lymphoma
     Dosage: SUBSEQUENT DOSE WAS TAKEN ON 27/JUN/2016 TO 01/JUL/2016, 18/JUL/2016 TO 22/JUL/2016, 08/AUG/2016 TO
     Route: 042
     Dates: start: 20160425, end: 20160428
  10. ETOPOSIDE [Suspect]
     Active Substance: ETOPOSIDE
     Dosage: SUBSEQUENT DOSE WAS TAKEN ON 06/JUN/2016 TO 10/JUN/2016
     Route: 042
  11. METHOTREXATE [Suspect]
     Active Substance: METHOTREXATE
     Indication: Burkitt^s lymphoma
     Dosage: SUBSEQUENT DOSE WAS TAKEN ON 13/JUN/2016 TO 13/JUN/2016, 28/JUN/2016 TO 28/JUN/2016, 05/JUL/2016 TO
     Route: 065
     Dates: start: 20160609, end: 20160609
  12. PEGFILGRASTIM [Suspect]
     Active Substance: PEGFILGRASTIM
     Indication: Burkitt^s lymphoma
     Dosage: SUBSEQUENT DOSE WAS TAKEN ON 21/MAY/2016 TO  21/MAY/2016, 11/JUN/2016 TO 11/JUN/2016, 02/JUL/2016 TO
     Route: 065
     Dates: start: 20160502, end: 20160502
  13. PREDNISONE [Suspect]
     Active Substance: PREDNISONE
     Indication: Burkitt^s lymphoma
     Dosage: SUBSEQUENT DOSE WAS TAKEN ON 16/MAY/2016 TO 20/MAY/2016, 06/JUN/2016 TO 10/JUN/2016, 27//JUN/2016 TO
     Route: 042
     Dates: start: 20160425, end: 20160430
  14. VINCRISTINE [Suspect]
     Active Substance: VINCRISTINE
     Indication: Burkitt^s lymphoma
     Dosage: SUBSEQUENT DOSE WAS TAKEN ON 16/MAY/2016 TO 20/MAY/2016. 06/JUN/2016 TO 10/JUN/2016, 27/JUN/2016 TO
     Route: 042
     Dates: start: 20160425, end: 20160428

REACTIONS (5)
  - Stomatitis [Recovered/Resolved]
  - Oral pain [Recovered/Resolved]
  - Platelet count decreased [Recovered/Resolved]
  - Hypotension [Recovered/Resolved]
  - Dehydration [Recovered/Resolved]

NARRATIVE: CASE EVENT DATE: 20160619
